FAERS Safety Report 9931057 (Version 2)
Quarter: 2014Q1

REPORT INFORMATION
  Report Type: Report from Study
  Country: US (occurrence: US)
  Receive Date: 20140227
  Receipt Date: 20140318
  Transmission Date: 20141002
  Serious: Yes (Other)
  Sender: FDA-Public Use
  Company Number: PHEH2014US003698

PATIENT
  Sex: Female

DRUGS (1)
  1. GLEEVEC [Suspect]
     Dosage: 400 MG, QD
     Route: 048

REACTIONS (5)
  - Cystitis [Unknown]
  - Dizziness [Unknown]
  - Bladder cancer [Unknown]
  - Abdominal discomfort [Unknown]
  - Vomiting [Unknown]
